FAERS Safety Report 16564799 (Version 1)
Quarter: 2019Q3

REPORT INFORMATION
  Report Type: Spontaneous
  Country: CN (occurrence: CN)
  Receive Date: 20190712
  Receipt Date: 20190712
  Transmission Date: 20191004
  Serious: Yes (Death, Hospitalization)
  Sender: FDA-Public Use
  Company Number: CN-SA-2019SA183815

PATIENT
  Age: 55 Year
  Sex: Female

DRUGS (6)
  1. GEMCITABINE. [Suspect]
     Active Substance: GEMCITABINE
     Indication: GALLBLADDER CANCER
     Dosage: 1.0 G/M2 DAY 1 AND 8
     Route: 042
     Dates: start: 201704, end: 201706
  2. TRASTUZUMAB. [Suspect]
     Active Substance: TRASTUZUMAB
     Indication: GALLBLADDER CANCER
     Dosage: 6 MG/KG
     Dates: start: 201706, end: 201707
  3. PACLITAXEL. [Suspect]
     Active Substance: PACLITAXEL
     Indication: GALLBLADDER CANCER
     Dosage: 130 MG/M2
     Dates: start: 201706, end: 201707
  4. OXALIPLATIN. [Suspect]
     Active Substance: OXALIPLATIN
     Indication: GALLBLADDER CANCER
     Dosage: 130 MG/M2 DAY 2
     Dates: start: 201704, end: 201706
  5. CAPECITABINE. [Suspect]
     Active Substance: CAPECITABINE
     Indication: GALLBLADDER CANCER
     Dosage: 1250 MG/M2, BID DAY 1-14
     Dates: start: 201706, end: 201707
  6. AFATINIB [Suspect]
     Active Substance: AFATINIB
     Indication: GALLBLADDER CANCER
     Dosage: 40 MG, QD
     Dates: start: 20170717

REACTIONS (2)
  - Disease progression [Unknown]
  - General physical health deterioration [Unknown]
